FAERS Safety Report 11513785 (Version 2)
Quarter: 2015Q4

REPORT INFORMATION
  Report Type: Spontaneous
  Country: US (occurrence: US)
  Receive Date: 20150916
  Receipt Date: 20151102
  Transmission Date: 20160304
  Serious: No
  Sender: FDA-Public Use
  Company Number: US-PFIZER INC-2015297737

PATIENT
  Age: 51 Year
  Sex: Male

DRUGS (2)
  1. PROTONIX [Suspect]
     Active Substance: PANTOPRAZOLE SODIUM
     Indication: ABDOMINAL PAIN UPPER
     Dosage: 40 MG, 2X/DAY
     Dates: start: 20150823, end: 20150905
  2. GABAPENTIN. [Concomitant]
     Active Substance: GABAPENTIN
     Dosage: 400 MG 2 CAPSULES 5 X A DAY
     Dates: start: 200501

REACTIONS (2)
  - Product use issue [Unknown]
  - Drug screen positive [Recovered/Resolved]

NARRATIVE: CASE EVENT DATE: 201508
